FAERS Safety Report 16254276 (Version 1)
Quarter: 2019Q2

REPORT INFORMATION
  Report Type: Spontaneous
  Country: US (occurrence: US)
  Receive Date: 20190430
  Receipt Date: 20190430
  Transmission Date: 20190711
  Serious: Yes (Death)
  Sender: FDA-Public Use
  Company Number: PHHY2019US097192

PATIENT
  Age: 64 Year

DRUGS (6)
  1. MELPHALAN. [Suspect]
     Active Substance: MELPHALAN
     Indication: STEM CELL TRANSPLANT
     Dosage: UNK
     Route: 042
  2. MELPHALAN. [Suspect]
     Active Substance: MELPHALAN
     Indication: BONE MARROW CONDITIONING REGIMEN
  3. TACROLIMUS. [Suspect]
     Active Substance: TACROLIMUS
     Indication: STEM CELL TRANSPLANT
     Route: 065
  4. TACROLIMUS. [Suspect]
     Active Substance: TACROLIMUS
     Indication: PROPHYLAXIS AGAINST GRAFT VERSUS HOST DISEASE
  5. FLUDARABINE [Suspect]
     Active Substance: FLUDARABINE PHOSPHATE
     Indication: BONE MARROW CONDITIONING REGIMEN
  6. FLUDARABINE [Suspect]
     Active Substance: FLUDARABINE PHOSPHATE
     Indication: STEM CELL TRANSPLANT
     Dosage: UNK
     Route: 042

REACTIONS (2)
  - Product use in unapproved indication [Unknown]
  - Graft versus host disease [Fatal]
